FAERS Safety Report 9523196 (Version 2)
Quarter: 2013Q4

REPORT INFORMATION
  Report Type: Spontaneous
  Country: JP (occurrence: JP)
  Receive Date: 20130913
  Receipt Date: 20131004
  Transmission Date: 20140711
  Serious: Yes (Hospitalization)
  Sender: FDA-Public Use
  Company Number: JP-GLAXOSMITHKLINE-B0922305A

PATIENT
  Age: 85 Year
  Sex: Male

DRUGS (1)
  1. VALTREX [Suspect]
     Indication: HERPES ZOSTER
     Route: 048
     Dates: end: 20130909

REACTIONS (3)
  - Toxic encephalopathy [Recovering/Resolving]
  - Meningitis viral [Recovering/Resolving]
  - Renal impairment [Unknown]
